FAERS Safety Report 14329097 (Version 1)
Quarter: 2017Q4

REPORT INFORMATION
  Report Type: Spontaneous
  Country: FR (occurrence: FR)
  Receive Date: 20171227
  Receipt Date: 20171227
  Transmission Date: 20180321
  Serious: Yes (Other)
  Sender: FDA-Public Use
  Company Number: FR-BAYER-2017-245909

PATIENT
  Age: 33 Year
  Sex: Female
  Weight: 67 kg

DRUGS (1)
  1. MIRENA [Suspect]
     Active Substance: LEVONORGESTREL
     Indication: CONTRACEPTION
     Dosage: 20 MCG/24HR, CONT
     Route: 015

REACTIONS (15)
  - Anxiety [Recovering/Resolving]
  - Weight increased [Recovered/Resolved]
  - Depression [Recovered/Resolved]
  - Depressed mood [Recovering/Resolving]
  - Crying [Recovering/Resolving]
  - Panic reaction [Recovering/Resolving]
  - Seborrhoea [Recovered/Resolved]
  - Libido decreased [Recovered/Resolved]
  - Social avoidant behaviour [Recovering/Resolving]
  - Hypertrichosis [Recovered/Resolved]
  - Disability [Recovering/Resolving]
  - Fatigue [Recovered/Resolved]
  - Acne [Recovered/Resolved]
  - Headache [Recovered/Resolved]
  - Nausea [Recovered/Resolved]

NARRATIVE: CASE EVENT DATE: 20150801
